FAERS Safety Report 23213133 (Version 3)
Quarter: 2024Q1

REPORT INFORMATION
  Report Type: Report from Study
  Country: MX (occurrence: None)
  Receive Date: 20231121
  Receipt Date: 20240103
  Transmission Date: 20240410
  Serious: Yes (Disabling, Other)
  Sender: FDA-Public Use
  Company Number: 2022A389681

PATIENT
  Age: 66 Year
  Sex: Female
  Weight: 60 kg

DRUGS (3)
  1. TAGRISSO [Suspect]
     Active Substance: OSIMERTINIB
     Indication: Non-small cell lung cancer
     Route: 048
     Dates: start: 20200827, end: 202311
  2. TAGRISSO [Suspect]
     Active Substance: OSIMERTINIB
     Indication: Non-small cell lung cancer
     Route: 048
     Dates: start: 20231109
  3. CEFTRIAXONE [Concomitant]
     Active Substance: CEFTRIAXONE\CEFTRIAXONE SODIUM
     Indication: Cough

REACTIONS (38)
  - Fall [Unknown]
  - Gait disturbance [Unknown]
  - Rash [Unknown]
  - Metastases to bone [Unknown]
  - Lymphadenopathy [Unknown]
  - Pulmonary mass [Unknown]
  - Hiatus hernia [Unknown]
  - Spinal osteoarthritis [Unknown]
  - Pulmonary hilum mass [Unknown]
  - Limb injury [Unknown]
  - Joint injury [Unknown]
  - Bone lesion [Unknown]
  - Thrombocytopenia [Unknown]
  - Constipation [Unknown]
  - Abdominal pain upper [Unknown]
  - Gastrointestinal disorder [Unknown]
  - Nausea [Unknown]
  - Dry mouth [Unknown]
  - Abdominal distension [Unknown]
  - Dizziness [Unknown]
  - Pallor [Unknown]
  - Chest pain [Not Recovered/Not Resolved]
  - Gastrointestinal pain [Unknown]
  - Vomiting [Unknown]
  - Weight decreased [Unknown]
  - Dry skin [Unknown]
  - Diarrhoea [Unknown]
  - Abdominal pain [Unknown]
  - Headache [Unknown]
  - Eastern Cooperative Oncology Group performance status worsened [Unknown]
  - Balance disorder [Unknown]
  - Arthralgia [Not Recovered/Not Resolved]
  - Osteoarthritis [Unknown]
  - Leukopenia [Unknown]
  - Neutropenia [Unknown]
  - Rash macular [Unknown]
  - Fatigue [Unknown]
  - Cough [Not Recovered/Not Resolved]

NARRATIVE: CASE EVENT DATE: 20220220
